FAERS Safety Report 16481623 (Version 5)
Quarter: 2019Q3

REPORT INFORMATION
  Report Type: Report from Study
  Country: GB (occurrence: GB)
  Receive Date: 20190627
  Receipt Date: 20190930
  Transmission Date: 20191004
  Serious: Yes (Hospitalization, Other)
  Sender: FDA-Public Use
  Company Number: GB-ROCHE-2339262

PATIENT
  Sex: Female
  Weight: 58.5 kg

DRUGS (8)
  1. PREDNISOLONE. [Concomitant]
     Active Substance: PREDNISOLONE
     Route: 048
  2. WARFARIN [Concomitant]
     Active Substance: WARFARIN
  3. ROACTEMRA [Suspect]
     Active Substance: TOCILIZUMAB
     Indication: TEMPORAL ARTERITIS
     Route: 058
     Dates: start: 20190610
  4. ROACTEMRA [Suspect]
     Active Substance: TOCILIZUMAB
     Route: 058
     Dates: start: 201903
  5. DIGOXIN. [Concomitant]
     Active Substance: DIGOXIN
  6. ROACTEMRA [Suspect]
     Active Substance: TOCILIZUMAB
     Indication: TEMPORAL ARTERITIS
     Route: 042
     Dates: start: 20190314
  7. ROACTEMRA [Suspect]
     Active Substance: TOCILIZUMAB
     Route: 042
     Dates: start: 20190502
  8. EDOXABAN [Concomitant]
     Active Substance: EDOXABAN TOSYLATE
     Route: 048

REACTIONS (20)
  - Sepsis [Recovering/Resolving]
  - Skin discolouration [Unknown]
  - Furuncle [Unknown]
  - Malaise [Unknown]
  - Skin fragility [Recovered/Resolved]
  - Facial pain [Unknown]
  - Peripheral swelling [Unknown]
  - Neck pain [Unknown]
  - Rash [Unknown]
  - Skin cancer [Unknown]
  - Pain [Unknown]
  - Visual impairment [Unknown]
  - Hypersensitivity [Unknown]
  - Post procedural haemorrhage [Recovered/Resolved]
  - Swelling face [Unknown]
  - Skin tightness [Unknown]
  - Muscle tightness [Unknown]
  - Pain in extremity [Unknown]
  - Seborrhoeic dermatitis [Recovered/Resolved]
  - Swelling [Unknown]

NARRATIVE: CASE EVENT DATE: 20190613
